FAERS Safety Report 6807648-5 (Version None)
Quarter: 2010Q2

REPORT INFORMATION
  Report Type: 
  Country: None (occurrence: None)
  Receive Date: 20100629
  Receipt Date: 20081104
  Transmission Date: 20101027
  Serious: No
  Sender: FDA-Public Use
  Company Number: US-PFIZER INC-2008092419

PATIENT
  Sex: Male
  Weight: 104 kg

DRUGS (7)
  1. TIKOSYN [Suspect]
     Indication: ATRIAL FIBRILLATION
     Dates: start: 20081001
  2. WARFARIN SODIUM [Concomitant]
  3. DRUG, UNSPECIFIED [Concomitant]
  4. AMLODIPINE [Concomitant]
  5. TOPROL-XL [Concomitant]
  6. SOTALOL [Concomitant]
  7. HYDROCHLOROTHIAZIDE [Concomitant]

REACTIONS (4)
  - ARRHYTHMIA [None]
  - ATRIAL FIBRILLATION [None]
  - BLOOD SODIUM DECREASED [None]
  - OEDEMA PERIPHERAL [None]
